FAERS Safety Report 13907412 (Version 1)
Quarter: 2017Q3

REPORT INFORMATION
  Report Type: Spontaneous
  Country: US (occurrence: US)
  Receive Date: 20170825
  Receipt Date: 20170825
  Transmission Date: 20171127
  Serious: No
  Sender: FDA-Public Use
  Company Number: US-ROCHE-1315413

PATIENT
  Age: 10 Year
  Sex: Female

DRUGS (3)
  1. NUTROPIN [Suspect]
     Active Substance: SOMATROPIN
     Dosage: GRADUALLY INCREASED BACK TO ORIGINAL DOSE
     Route: 065
     Dates: start: 201310, end: 201310
  2. NUTROPIN [Suspect]
     Active Substance: SOMATROPIN
     Route: 065
     Dates: end: 20131101
  3. NUTROPIN [Suspect]
     Active Substance: SOMATROPIN
     Indication: TURNER^S SYNDROME
     Route: 065
     Dates: start: 20131003

REACTIONS (1)
  - Headache [Recovered/Resolved]

NARRATIVE: CASE EVENT DATE: 20131003
